FAERS Safety Report 14295757 (Version 2)
Quarter: 2018Q1

REPORT INFORMATION
  Report Type: Spontaneous
  Country: US (occurrence: US)
  Receive Date: 20171218
  Receipt Date: 20180205
  Transmission Date: 20180509
  Serious: No
  Sender: FDA-Public Use
  Company Number: US-AUROBINDO-AUR-APL-2017-45314

PATIENT
  Age: 54 Year
  Sex: Female
  Weight: 93 kg

DRUGS (1)
  1. ROCURONIUM BROMIDE. [Suspect]
     Active Substance: ROCURONIUM BROMIDE
     Indication: ENDOTRACHEAL INTUBATION
     Dosage: 40 MG, (0.4 MG/KG; 0.7 MG/KG IBW))
     Route: 065

REACTIONS (1)
  - Drug effect prolonged [Recovered/Resolved]
